FAERS Safety Report 7758369-6 (Version None)
Quarter: 2011Q3

REPORT INFORMATION
  Report Type: 
  Country: None (occurrence: None)
  Receive Date: 20110919
  Receipt Date: 20110909
  Transmission Date: 20111222
  Serious: Yes (Hospitalization, Other)
  Sender: FDA-Public Use
  Company Number: AU-GENZYME-THYM-1001982

PATIENT
  Sex: Male
  Weight: 80 kg

DRUGS (2)
  1. THYMOGLOBULIN [Suspect]
     Indication: BONE MARROW CONDITIONING REGIMEN
     Dosage: 40 MG, ONCE
     Route: 042
     Dates: start: 20091012, end: 20091012
  2. THYMOGLOBULIN [Suspect]
     Dosage: 160 MG, QD
     Route: 042
     Dates: start: 20091013, end: 20091014

REACTIONS (2)
  - DISEASE RECURRENCE [None]
  - INFECTION [None]
